FAERS Safety Report 11844287 (Version 1)
Quarter: 2015Q4

REPORT INFORMATION
  Report Type: Spontaneous
  Country: US (occurrence: None)
  Receive Date: 20151216
  Receipt Date: 20151216
  Transmission Date: 20160305
  Serious: No
  Sender: FDA-Public Use
  Company Number: None

PATIENT
  Age: 63 Year
  Sex: Female

DRUGS (1)
  1. HUMIRA [Suspect]
     Active Substance: ADALIMUMAB
     Indication: MALAISE
     Route: 058
     Dates: start: 20150309

REACTIONS (5)
  - Bone pain [None]
  - Muscular weakness [None]
  - Hypoaesthesia [None]
  - Inappropriate schedule of drug administration [None]
  - Paraesthesia [None]

NARRATIVE: CASE EVENT DATE: 20151213
